FAERS Safety Report 6984824-2 (Version None)
Quarter: 2010Q3

REPORT INFORMATION
  Report Type: 
  Country: None (occurrence: None)
  Receive Date: 20100913
  Receipt Date: 20100830
  Transmission Date: 20110219
  Serious: Yes (Other)
  Sender: FDA-Public Use
  Company Number: ACO_01465_2010

PATIENT
  Sex: Female
  Weight: 66.6788 kg

DRUGS (8)
  1. AMPYRA [Suspect]
     Indication: GAIT DISTURBANCE
     Dosage: (10 MG BID, AT 9:00PM AND AT 6:00 OR 7:00AM ORAL)
     Route: 048
     Dates: start: 20100501, end: 20100715
  2. TYSABRI [Suspect]
     Indication: PRODUCT USED FOR UNKNOWN INDICATION
     Dosage: (INFUSIONS), (DF)
     Dates: end: 20091201
  3. TYSABRI [Suspect]
     Indication: PRODUCT USED FOR UNKNOWN INDICATION
     Dosage: (INFUSIONS), (DF)
     Dates: start: 20100810
  4. ARMODAFINIL [Concomitant]
  5. DETROL LA [Concomitant]
  6. VITAMIN D [Concomitant]
  7. WELLBUTRIN XL [Concomitant]
  8. NORTRIPTYLINE HCL [Concomitant]

REACTIONS (4)
  - AMNESIA [None]
  - FEELING ABNORMAL [None]
  - GRAND MAL CONVULSION [None]
  - URINARY TRACT INFECTION [None]
